FAERS Safety Report 15566696 (Version 2)
Quarter: 2018Q4

REPORT INFORMATION
  Report Type: Report from Study
  Country: None (occurrence: HU)
  Receive Date: 20181030
  Receipt Date: 20181226
  Transmission Date: 20190205
  Serious: Yes (Hospitalization)
  Sender: FDA-Public Use
  Company Number: HU-ABBVIE-18P-076-2536797-00

PATIENT
  Age: 68 Year
  Sex: Male
  Weight: 92 kg

DRUGS (5)
  1. DUODOPA [Suspect]
     Active Substance: CARBIDOPA\LEVODOPA
     Route: 050
     Dates: start: 20161201
  2. QUETIAPIN [Concomitant]
     Active Substance: QUETIAPINE
     Indication: HALLUCINATION
     Route: 048
     Dates: start: 20171212
  3. MIRVEDOL [Concomitant]
     Indication: COGNITIVE DISORDER
     Route: 048
     Dates: start: 20180606
  4. DUODOPA [Suspect]
     Active Substance: CARBIDOPA\LEVODOPA
     Indication: PARKINSON^S DISEASE
     Dosage: TITRATION: DOSING AT END OF TITRATION: MD: 10.4 ML, CD: 3.2 ML/H, ED: 1 ML, 1X/D, 16 HR
     Route: 050
     Dates: start: 20161107, end: 20161110
  5. DUODOPA [Suspect]
     Active Substance: CARBIDOPA\LEVODOPA
     Route: 050
     Dates: start: 20161110, end: 20161201

REACTIONS (3)
  - Hallucination [Not Recovered/Not Resolved]
  - Cognitive disorder [Not Recovered/Not Resolved]
  - Hip fracture [Recovered/Resolved]

NARRATIVE: CASE EVENT DATE: 20170919
